FAERS Safety Report 9393255 (Version 1)
Quarter: 2013Q3

REPORT INFORMATION
  Report Type: Spontaneous
  Country: DK (occurrence: DK)
  Receive Date: 20130710
  Receipt Date: 20130710
  Transmission Date: 20140515
  Serious: Yes (Hospitalization, Other)
  Sender: FDA-Public Use
  Company Number: DK-PFIZER INC-2013202027

PATIENT
  Age: 28 Year
  Sex: Female

DRUGS (1)
  1. MISOPROSTOL [Suspect]
     Indication: LABOUR INDUCTION
     Dosage: STRENGTH: 25 MG
     Dates: start: 20070920, end: 20070921

REACTIONS (3)
  - Off label use [Unknown]
  - Anal injury [Recovered/Resolved]
  - Postpartum haemorrhage [Recovered/Resolved]
